FAERS Safety Report 5010048-4 (Version None)
Quarter: 2006Q2

REPORT INFORMATION
  Report Type: 
  Country: None (occurrence: None)
  Receive Date: 20060523
  Receipt Date: 20060515
  Transmission Date: 20061013
  Serious: Yes (Hospitalization)
  Sender: FDA-Public Use
  Company Number: 2006063428

PATIENT
  Age: 72 Year
  Sex: Female
  Weight: 60 kg

DRUGS (5)
  1. QUINAPRIL HCL [Suspect]
     Indication: ESSENTIAL HYPERTENSION
     Dosage: 5 MG (5 MG, DAIL INTERVAL: EVERY DAY), ORAL
     Route: 048
     Dates: start: 20051110, end: 20051126
  2. NORVASC [Concomitant]
  3. FORADIL (FOMOTEROL FUMARATE) [Concomitant]
  4. LIMBITROL (AMITRIPTYLINE HYDROCHLORIDE, CHLORDIAZEPOXIDE) [Concomitant]
  5. KARDEGIC (ACETYLSALICYLATE LYSINE) [Concomitant]

REACTIONS (1)
  - ANGIONEUROTIC OEDEMA [None]
